FAERS Safety Report 23615358 (Version 1)
Quarter: 2024Q1

REPORT INFORMATION
  Report Type: Spontaneous
  Country: JP (occurrence: JP)
  Receive Date: 20240311
  Receipt Date: 20240311
  Transmission Date: 20240410
  Serious: Yes (Hospitalization)
  Sender: FDA-Public Use
  Company Number: JP-ALKEM LABORATORIES LIMITED-JP-ALKEM-2023-17188

PATIENT
  Age: 79 Year
  Sex: Female
  Weight: 58.5 kg

DRUGS (9)
  1. LINEZOLID [Interacting]
     Active Substance: LINEZOLID
     Indication: Staphylococcal infection
     Dosage: 600 MILLIGRAM, BID (AT 12 HOURS)
     Route: 065
  2. LINEZOLID [Interacting]
     Active Substance: LINEZOLID
     Indication: Osteomyelitis
     Dosage: 300 MILLIGRAM, BID (AT 12 HOUR INTERVAL)
     Route: 042
  3. LINEZOLID [Interacting]
     Active Substance: LINEZOLID
     Dosage: 600 MILLIGRAM, BID (AT 12 HOURS)
     Route: 065
  4. VANCOMYCIN [Suspect]
     Active Substance: VANCOMYCIN
     Indication: Staphylococcal infection
     Dosage: UNK
     Route: 065
  5. VANCOMYCIN [Suspect]
     Active Substance: VANCOMYCIN
     Indication: Osteomyelitis
  6. DAPTOMYCIN [Suspect]
     Active Substance: DAPTOMYCIN
     Indication: Staphylococcal infection
     Dosage: UNK
     Route: 065
  7. DAPTOMYCIN [Suspect]
     Active Substance: DAPTOMYCIN
     Indication: Osteomyelitis
  8. RIFAMPIN [Interacting]
     Active Substance: RIFAMPIN
     Indication: Staphylococcal infection
     Dosage: 450 MG/DAY
     Route: 048
  9. RIFAMPIN [Interacting]
     Active Substance: RIFAMPIN
     Indication: Osteomyelitis

REACTIONS (3)
  - Drug interaction [Unknown]
  - Platelet count decreased [Unknown]
  - Drug ineffective [Unknown]
